FAERS Safety Report 20491365 (Version 1)
Quarter: 2022Q1

REPORT INFORMATION
  Report Type: Spontaneous
  Country: US (occurrence: US)
  Receive Date: 20220218
  Receipt Date: 20220218
  Transmission Date: 20220423
  Serious: Yes (Hospitalization, Other)
  Sender: FDA-Public Use
  Company Number: US-SA-SAC20220217000951

PATIENT
  Age: 64 Year
  Sex: Female

DRUGS (17)
  1. DUPIXENT [Suspect]
     Active Substance: DUPILUMAB
     Indication: Nasal polyps
     Dosage: 300 MG, QOW
     Route: 058
     Dates: start: 202104
  2. PANTOPRAZOLE SODIUM [Concomitant]
     Active Substance: PANTOPRAZOLE SODIUM
  3. EZETIMIBE [Concomitant]
     Active Substance: EZETIMIBE
  4. VITAMIN D3 [Concomitant]
     Active Substance: CHOLECALCIFEROL
  5. EPINEPHRINE [Concomitant]
     Active Substance: EPINEPHRINE
  6. ALBUTEROL SULFATE [Concomitant]
     Active Substance: ALBUTEROL SULFATE
  7. AZELASTINE [Concomitant]
     Active Substance: AZELASTINE
  8. AMOXICILLIN\CLAVULANIC ACID [Concomitant]
     Active Substance: AMOXICILLIN\CLAVULANIC ACID
  9. AMLODIPINE BESYLATE [Concomitant]
     Active Substance: AMLODIPINE BESYLATE
     Indication: Hypertension
  10. DICYCLOMINE HYDROCHLORIDE [Concomitant]
     Active Substance: DICYCLOMINE HYDROCHLORIDE
  11. CIPROFLOXACINA+DEXAMETHASONA [Concomitant]
  12. METRONIDAZOLE [Concomitant]
     Active Substance: METRONIDAZOLE
  13. LORAZEPAM [Concomitant]
     Active Substance: LORAZEPAM
     Indication: Depression
  14. BUDESONIDE [Concomitant]
     Active Substance: BUDESONIDE
  15. ADVAIR HFA [Concomitant]
     Active Substance: FLUTICASONE PROPIONATE\SALMETEROL XINAFOATE
     Indication: Asthma
  16. OMEPRAZOLE [Concomitant]
     Active Substance: OMEPRAZOLE
  17. PROBIOTICS NOS [Concomitant]
     Active Substance: PROBIOTICS NOS
     Dosage: 250MM CELL TAB CHEW

REACTIONS (2)
  - Diverticulitis [Recovering/Resolving]
  - Product use in unapproved indication [Unknown]

NARRATIVE: CASE EVENT DATE: 20210401
